FAERS Safety Report 23134350 (Version 2)
Quarter: 2023Q4

REPORT INFORMATION
  Report Type: Spontaneous
  Country: US (occurrence: US)
  Receive Date: 20231101
  Receipt Date: 20231113
  Transmission Date: 20240110
  Serious: Yes (Hospitalization)
  Sender: FDA-Public Use
  Company Number: US-TEVA-2023-US-2940239

PATIENT
  Age: 58 Year
  Sex: Male

DRUGS (8)
  1. GEMCITABINE [Suspect]
     Active Substance: GEMCITABINE
     Indication: Hodgkin^s disease
     Dosage: RECEIVED TWO CYCLES 5 MONTHS PRIOR TO PRESENTATION
     Route: 065
  2. DOXORUBICIN [Suspect]
     Active Substance: DOXORUBICIN
     Indication: Hodgkin^s disease
     Dosage: RECEIVED TWO CYCLES 5 MONTHS PRIOR TO PRESENTATION
     Route: 065
  3. VINORELBINE [Suspect]
     Active Substance: VINORELBINE TARTRATE
     Indication: Hodgkin^s disease
     Dosage: RECEIVED TWO CYCLES 5 MONTHS PRIOR TO PRESENTATION
     Route: 065
  4. ETOPOSIDE [Suspect]
     Active Substance: ETOPOSIDE
     Indication: Bone marrow conditioning regimen
     Dosage: PART OF BEAM REGIMEN; RECEIVED 3.5 MONTHS PRIOR TO THE CURRENT PRESENTATION
     Route: 065
  5. MELPHALAN [Suspect]
     Active Substance: MELPHALAN
     Indication: Bone marrow conditioning regimen
     Dosage: PART OF BEAM REGIMEN; RECEIVED 3.5 MONTHS PRIOR TO THE CURRENT PRESENTATION.
     Route: 065
  6. CARMUSTINE [Suspect]
     Active Substance: CARMUSTINE
     Indication: Bone marrow conditioning regimen
     Dosage: PART OF BEAM REGIMEN; RECEIVED 3.5 MONTHS PRIOR TO THE CURRENT PRESENTATION
     Route: 065
  7. CYTARABINE [Suspect]
     Active Substance: CYTARABINE
     Indication: Bone marrow conditioning regimen
     Dosage: PART OF BEAM REGIMEN; RECEIVED 3.5 MONTHS PRIOR TO THE CURRENT PRESENTATION
     Route: 065
  8. PEMBROLIZUMAB [Suspect]
     Active Substance: PEMBROLIZUMAB
     Indication: Hodgkin^s disease
     Dosage: RECEIVED TWO CYCLES 5 MONTHS PRIOR TO PRESENTATION
     Route: 065

REACTIONS (2)
  - Hypothyroidism [Recovered/Resolved]
  - Cardiac tamponade [Recovered/Resolved]
